FAERS Safety Report 8839544 (Version 2)
Quarter: 2013Q2

REPORT INFORMATION
  Report Type: Report from Study
  Country: CA (occurrence: CA)
  Receive Date: 20121015
  Receipt Date: 20130522
  Transmission Date: 20140414
  Serious: Yes (Other)
  Sender: FDA-Public Use
  Company Number: PHHY2012CA046553

PATIENT
  Sex: Male

DRUGS (5)
  1. AFINITOR [Suspect]
     Indication: HEPATIC CANCER METASTATIC
     Dosage: 10 MG, DAILY
     Route: 048
     Dates: start: 20120505, end: 20120710
  2. AFINITOR [Suspect]
     Dosage: 5 MG, DAILY
     Route: 048
     Dates: start: 20120801, end: 201302
  3. AFINITOR [Suspect]
     Dosage: 5 MG, QOD (ALTERNATIVELY)
     Route: 048
     Dates: start: 201302
  4. AFINITOR [Suspect]
     Dosage: 10 MG, QOD (ALTERNATIVELY)
     Route: 048
     Dates: start: 201302
  5. SANDOSTATIN [Suspect]
     Indication: HEPATIC CANCER METASTATIC
     Dosage: 30 MG, QMO
     Route: 030
     Dates: start: 20091101

REACTIONS (5)
  - Blood pressure increased [Unknown]
  - Arthralgia [Recovering/Resolving]
  - Stomatitis [Not Recovered/Not Resolved]
  - Oral herpes [Unknown]
  - Gait disturbance [Recovering/Resolving]
